FAERS Safety Report 5303137-8 (Version None)
Quarter: 2007Q2

REPORT INFORMATION
  Report Type: 
  Country: None (occurrence: None)
  Receive Date: 20070420
  Receipt Date: 20070413
  Transmission Date: 20071010
  Serious: Yes (Other)
  Sender: FDA-Public Use
  Company Number: PHBS2007IN06549

PATIENT
  Age: 62 Year
  Sex: Female

DRUGS (2)
  1. VOVERAN PLUS [Suspect]
     Dosage: DICLO 50 / PARA 500 MG/DAY
     Route: 048
  2. PARACETAMOL [Concomitant]
     Dosage: 1 ML/DAY
     Route: 030

REACTIONS (7)
  - BLOOD PRESSURE DECREASED [None]
  - EYE PRURITUS [None]
  - FEELING ABNORMAL [None]
  - OCULAR HYPERAEMIA [None]
  - PRURITUS GENERALISED [None]
  - PULSE ABNORMAL [None]
  - RESTLESSNESS [None]
